FAERS Safety Report 14536485 (Version 2)
Quarter: 2018Q1

REPORT INFORMATION
  Report Type: Spontaneous
  Country: US (occurrence: US)
  Receive Date: 20180215
  Receipt Date: 20180326
  Transmission Date: 20180509
  Serious: Yes (Hospitalization, Other)
  Sender: FDA-Public Use
  Company Number: US-IMPAX LABORATORIES, INC-2018-IPXL-00417

PATIENT
  Age: 21 Year
  Sex: Male

DRUGS (1)
  1. LAMOTRIGINE ODT [Suspect]
     Active Substance: LAMOTRIGINE
     Indication: GENERALISED ANXIETY DISORDER
     Dosage: UNK
     Route: 065

REACTIONS (2)
  - Epstein-Barr virus infection [Recovered/Resolved]
  - Drug reaction with eosinophilia and systemic symptoms [Recovered/Resolved]
